FAERS Safety Report 18067609 (Version 1)
Quarter: 2020Q3

REPORT INFORMATION
  Report Type: Spontaneous
  Country: US (occurrence: US)
  Receive Date: 20200724
  Receipt Date: 20200724
  Transmission Date: 20201103
  Serious: No
  Sender: FDA-Public Use
  Company Number: US-SA-2020SA187153

PATIENT

DRUGS (1)
  1. AUBAGIO [Suspect]
     Active Substance: TERIFLUNOMIDE
     Indication: MULTIPLE SCLEROSIS
     Dosage: 7 MG, QD
     Route: 048
     Dates: start: 20200616

REACTIONS (4)
  - Dysphagia [Not Recovered/Not Resolved]
  - Repetitive speech [Not Recovered/Not Resolved]
  - Tremor [Not Recovered/Not Resolved]
  - Cerebral disorder [Not Recovered/Not Resolved]
